FAERS Safety Report 20780476 (Version 3)
Quarter: 2022Q3

REPORT INFORMATION
  Report Type: Report from Study
  Country: US (occurrence: US)
  Receive Date: 20220504
  Receipt Date: 20220901
  Transmission Date: 20221026
  Serious: Yes (Hospitalization)
  Sender: FDA-Public Use
  Company Number: US-ABBVIE-22K-163-4377092-00

PATIENT
  Sex: Female

DRUGS (4)
  1. HUMIRA [Suspect]
     Active Substance: ADALIMUMAB
     Indication: Psoriasis
     Dosage: CITRATE FREE
     Route: 058
     Dates: end: 202205
  2. OTEZLA [Concomitant]
     Active Substance: APREMILAST
     Indication: Product used for unknown indication
     Route: 065
  3. PFIZER-BIONTECH COVID-19 VACCINE [Concomitant]
     Active Substance: TOZINAMERAN
     Indication: COVID-19 immunisation
     Dosage: FIRST DOSE
     Route: 030
     Dates: start: 20210405, end: 20210405
  4. PFIZER-BIONTECH COVID-19 VACCINE [Concomitant]
     Active Substance: TOZINAMERAN
     Dosage: SECOND DOSE
     Route: 030
     Dates: start: 20210527, end: 20210527

REACTIONS (11)
  - Skin warm [Unknown]
  - Blister [Unknown]
  - Urticaria [Unknown]
  - Neck mass [Unknown]
  - Pharyngeal mass [Unknown]
  - Feeling hot [Unknown]
  - Wound [Unknown]
  - Skin exfoliation [Unknown]
  - Lip swelling [Unknown]
  - Muscle tightness [Unknown]
  - Erythema [Unknown]

NARRATIVE: CASE EVENT DATE: 20220101
